FAERS Safety Report 9095449 (Version 1)
Quarter: 2013Q1

REPORT INFORMATION
  Report Type: Spontaneous
  Country: US (occurrence: US)
  Receive Date: 20130219
  Receipt Date: 20130219
  Transmission Date: 20140127
  Serious: Yes (Other)
  Sender: FDA-Public Use
  Company Number: CHPA2013US003029

PATIENT
  Age: 76 Year
  Sex: Female

DRUGS (1)
  1. GAS-X EXTSTR CHEWABLE TABS CHERRY CREME [Suspect]
     Indication: GASTROINTESTINAL DISORDER
     Dosage: 2 DF, PRN
     Route: 048

REACTIONS (3)
  - Hypertension [Not Recovered/Not Resolved]
  - Coeliac disease [Unknown]
  - Off label use [Unknown]
